FAERS Safety Report 17229970 (Version 1)
Quarter: 2019Q4

REPORT INFORMATION
  Report Type: Spontaneous
  Country: US (occurrence: US)
  Receive Date: 20191210
  Receipt Date: 20191210
  Transmission Date: 20200122
  Serious: Yes (Disabling)
  Sender: FDA-Public Use
  Company Number: None

PATIENT
  Age: 75 Year
  Sex: Female
  Weight: 63.5 kg

DRUGS (6)
  1. FOLIC ACID. [Concomitant]
     Active Substance: FOLIC ACID
  2. ATORVASTATIN CALCIUM 40MG TAB-SUB FOR LIPITOR [Suspect]
     Active Substance: ATORVASTATIN CALCIUM
     Indication: BLOOD CHOLESTEROL INCREASED
     Dosage: ?          QUANTITY:40 MG MILLIGRAM(S);?
     Route: 048
     Dates: start: 20190820
  3. MULTI VIT [Concomitant]
     Active Substance: VITAMINS
  4. VIT B COMPLEX D [Concomitant]
  5. NORVASC [Concomitant]
     Active Substance: AMLODIPINE BESYLATE
  6. TYLENOL [Concomitant]
     Active Substance: ACETAMINOPHEN

REACTIONS (17)
  - Asthenia [None]
  - Abdominal distension [None]
  - Flatulence [None]
  - Eructation [None]
  - Vomiting [None]
  - Speech disorder [None]
  - Confusional state [None]
  - Liver injury [None]
  - Dizziness [None]
  - Decreased appetite [None]
  - Myalgia [None]
  - Dysphonia [None]
  - Balance disorder [None]
  - Poor quality sleep [None]
  - Back pain [None]
  - Abdominal pain upper [None]
  - Swelling [None]

NARRATIVE: CASE EVENT DATE: 20191010
